FAERS Safety Report 6493427-8 (Version None)
Quarter: 2009Q4

REPORT INFORMATION
  Report Type: 
  Country: None (occurrence: None)
  Receive Date: 20091214
  Receipt Date: 20091203
  Transmission Date: 20100525
  Serious: Yes (Other)
  Sender: FDA-Public Use
  Company Number: GB-TEVA-217069ISR

PATIENT
  Age: 65 Year
  Sex: Female

DRUGS (1)
  1. ALENDRONIC ACID [Suspect]
     Route: 048

REACTIONS (1)
  - HYPOGLYCAEMIA [None]
